FAERS Safety Report 15318358 (Version 1)
Quarter: 2018Q3

REPORT INFORMATION
  Report Type: Spontaneous
  Country: US (occurrence: US)
  Receive Date: 20180817
  Receipt Date: 20180817
  Transmission Date: 20181010
  Serious: Yes (Death)
  Sender: FDA-Public Use
  Company Number: None

PATIENT
  Age: 57 Year
  Sex: Female

DRUGS (5)
  1. FENTANYL. [Concomitant]
     Active Substance: FENTANYL
  2. LIDOCAINE. [Concomitant]
     Active Substance: LIDOCAINE
  3. DULOXETINE. [Concomitant]
     Active Substance: DULOXETINE
  4. DEXAMETHASON [Concomitant]
     Active Substance: DEXAMETHASONE
  5. MELPHALAN. [Suspect]
     Active Substance: MELPHALAN
     Indication: OVARIAN CANCER
     Route: 048
     Dates: start: 201808

REACTIONS (1)
  - Death [None]

NARRATIVE: CASE EVENT DATE: 201808
